FAERS Safety Report 5320174-8 (Version None)
Quarter: 2007Q2

REPORT INFORMATION
  Report Type: 
  Country: None (occurrence: None)
  Receive Date: 20070503
  Receipt Date: 20070420
  Transmission Date: 20071010
  Serious: Yes (Death)
  Sender: FDA-Public Use
  Company Number: 2007BI008242

PATIENT
  Age: 80 Year
  Sex: Female

DRUGS (17)
  1. NATALIZUMAB [Suspect]
     Indication: MULTIPLE SCLEROSIS
     Dosage: 300 MG; QM; IV
     Route: 042
     Dates: start: 20070316, end: 20070316
  2. TEGRETOL [Concomitant]
  3. NEURONTIN [Concomitant]
  4. MULTI-VITAMIN [Concomitant]
  5. ACTONEL [Concomitant]
  6. CALCIUM WITH VITAMIN D [Concomitant]
  7. COLACE [Concomitant]
  8. TYLENOL [Concomitant]
  9. MILK OF MAGNESIA [Concomitant]
  10. ASPIRIN [Concomitant]
  11. ZANTAC [Concomitant]
  12. DOCUSATE WITH SENNASIDE [Concomitant]
  13. LEVOTHYROXINE SODIUM [Concomitant]
  14. EFFEXOR XR [Concomitant]
  15. LISINOPRIL [Concomitant]
  16. BACLOFEN [Concomitant]
  17. SEROQUEL [Concomitant]

REACTIONS (3)
  - DEPRESSED LEVEL OF CONSCIOUSNESS [None]
  - ORAL INTAKE REDUCED [None]
  - PAIN [None]
